FAERS Safety Report 15995358 (Version 2)
Quarter: 2019Q2

REPORT INFORMATION
  Report Type: Spontaneous
  Country: US (occurrence: US)
  Receive Date: 20190222
  Receipt Date: 20190404
  Transmission Date: 20190711
  Serious: No
  Sender: FDA-Public Use
  Company Number: US-ASTRAZENECA-2019SE17964

PATIENT
  Sex: Female
  Weight: 68 kg

DRUGS (3)
  1. PROAIR HFA [Concomitant]
     Active Substance: ALBUTEROL SULFATE
     Indication: DRUG THERAPY
     Dosage: 2 TO 3 PUFFS EVERYDAY
  2. SINGULAIR [Concomitant]
     Active Substance: MONTELUKAST SODIUM
     Route: 065
  3. SYMBICORT [Suspect]
     Active Substance: BUDESONIDE\FORMOTEROL FUMARATE DIHYDRATE
     Indication: DRUG THERAPY
     Dosage: 80/4.5 MCG, AS REQUIRED AS REQUIRED
     Route: 055
     Dates: start: 2014

REACTIONS (4)
  - Off label use [Unknown]
  - Intentional product misuse [Unknown]
  - Device malfunction [Unknown]
  - Dyspnoea [Unknown]
